FAERS Safety Report 15655291 (Version 1)
Quarter: 2018Q4

REPORT INFORMATION
  Report Type: Spontaneous
  Country: US (occurrence: US)
  Receive Date: 20181126
  Receipt Date: 20181126
  Transmission Date: 20190205
  Serious: No
  Sender: FDA-Public Use
  Company Number: US-ASTRAZENECA-2018SF44184

PATIENT
  Age: 1001 Month
  Sex: Male
  Weight: 84.4 kg

DRUGS (1)
  1. BYDUREON BCISE [Suspect]
     Active Substance: EXENATIDE
     Indication: DIABETES MELLITUS
     Route: 058
     Dates: start: 201809

REACTIONS (7)
  - Injection site pain [Recovering/Resolving]
  - Circumstance or information capable of leading to medication error [Unknown]
  - Intentional device misuse [Recovered/Resolved]
  - Vision blurred [Not Recovered/Not Resolved]
  - Injection site indentation [Not Recovered/Not Resolved]
  - Device issue [Unknown]
  - Injection site swelling [Recovering/Resolving]

NARRATIVE: CASE EVENT DATE: 201809
